FAERS Safety Report 9347879 (Version 1)
Quarter: 2013Q2

REPORT INFORMATION
  Report Type: Spontaneous
  Country: US (occurrence: US)
  Receive Date: 20130614
  Receipt Date: 20130614
  Transmission Date: 20140414
  Serious: No
  Sender: FDA-Public Use
  Company Number: US-009507513-1306USA003906

PATIENT
  Sex: Female

DRUGS (2)
  1. SAPHRIS [Suspect]
     Indication: BIPOLAR II DISORDER
     Dosage: 5 MG, QD
     Route: 060
     Dates: end: 201305
  2. DIURETIC (UNSPECIFIED) [Concomitant]

REACTIONS (3)
  - Local swelling [Unknown]
  - Underdose [Unknown]
  - Inappropriate schedule of drug administration [Unknown]
